FAERS Safety Report 4711384-9 (Version None)
Quarter: 2005Q3

REPORT INFORMATION
  Report Type: 
  Country: None (occurrence: None)
  Receive Date: 20050708
  Receipt Date: 20050627
  Transmission Date: 20060218
  Serious: Yes (Other)
  Sender: FDA-Public Use
  Company Number: 2005078271

PATIENT
  Age: 72 Year
  Sex: Male
  Weight: 97.977 kg

DRUGS (14)
  1. CELEBREX [Suspect]
     Indication: ARTHRITIS
     Dosage: 200 MG (100 MG, 2 IN 1 D), ORAL
     Route: 048
  2. LIPITOR [Suspect]
     Indication: BLOOD CHOLESTEROL INCREASED
     Dosage: 10 MG (10 MG, 1 IN 1 D), ORAL
     Route: 048
     Dates: start: 20020101
  3. NORVASC [Suspect]
     Indication: HYPERTENSION
     Dates: start: 20030101
  4. PREVACID [Concomitant]
  5. ALLEGRA [Concomitant]
  6. VALSARTAN [Concomitant]
  7. ENALAPRIL MALEATE [Concomitant]
  8. FLUOCINONIDE [Concomitant]
  9. ALL OTHER THERAPEUTIC PRODUCTS (ALL OTHER THERAPEUTIC PRODUCTS) [Concomitant]
  10. HYDROCHLORIDE (HYDROCHLOROTHIAZIDE) [Concomitant]
  11. POTASSIUM (POTASSIUM) [Concomitant]
  12. CROMOLYN SODIUM (CROMOLYN SODIUM) [Concomitant]
  13. CHLORHEXIDINE (CHLORHEXIDINE) [Concomitant]
  14. VIAGR (SILDENAFIL) [Concomitant]

REACTIONS (12)
  - BLOOD CHOLESTEROL INCREASED [None]
  - BLOOD PRESSURE INCREASED [None]
  - DRUG EFFECT DECREASED [None]
  - HYPERTENSION [None]
  - IMPAIRED HEALING [None]
  - INJURY [None]
  - JOINT INJURY [None]
  - JOINT RANGE OF MOTION DECREASED [None]
  - JOINT STIFFNESS [None]
  - MUSCLE INJURY [None]
  - NERVOUS SYSTEM DISORDER [None]
  - RENAL ARTERY OCCLUSION [None]
